FAERS Safety Report 6070202-X (Version None)
Quarter: 2009Q1

REPORT INFORMATION
  Report Type: 
  Country: None (occurrence: None)
  Receive Date: 20090209
  Receipt Date: 20090127
  Transmission Date: 20090719
  Serious: Yes (Congenital Anomaly, Other)
  Sender: FDA-Public Use
  Company Number: US-PFIZER INC-2008049868

PATIENT
  Sex: Female
  Weight: 3 kg

DRUGS (5)
  1. ZOLOFT [Suspect]
     Route: 064
     Dates: start: 20050901
  2. ZOFRAN [Concomitant]
  3. VITAMIN TAB [Concomitant]
  4. BUTALBITAL [Concomitant]
     Indication: HEADACHE
  5. TYLENOL [Concomitant]
     Indication: HEADACHE

REACTIONS (5)
  - CONGENITAL PULMONARY VALVE ATRESIA [None]
  - DRUG EXPOSURE DURING PREGNANCY [None]
  - FALLOT'S TETRALOGY [None]
  - NEONATAL RESPIRATORY DISTRESS SYNDROME [None]
  - PATENT DUCTUS ARTERIOSUS [None]
